FAERS Safety Report 16802478 (Version 5)
Quarter: 2019Q4

REPORT INFORMATION
  Report Type: Report from Study
  Country: US (occurrence: US)
  Receive Date: 20190912
  Receipt Date: 20191203
  Transmission Date: 20200122
  Serious: Yes (Death, Hospitalization)
  Sender: FDA-Public Use
  Company Number: US-EXELIXIS-XL18419023591

PATIENT
  Age: 74 Year
  Sex: Male
  Weight: 64.1 kg

DRUGS (13)
  1. ATEZOLIZUMAB. [Suspect]
     Active Substance: ATEZOLIZUMAB
     Dosage: 1200 MG, Q3WEEKS
     Route: 042
     Dates: start: 20191002
  2. ACETAMINOPHEN. [Concomitant]
     Active Substance: ACETAMINOPHEN
  3. TRENTAL [Concomitant]
     Active Substance: PENTOXIFYLLINE
  4. XL184 [Suspect]
     Active Substance: CABOZANTINIB
     Indication: HEAD AND NECK CANCER
     Dosage: 40 MG, QD
     Route: 048
     Dates: start: 20190809
  5. XL184 [Suspect]
     Active Substance: CABOZANTINIB
     Dosage: 20 MG, QD
     Route: 048
     Dates: start: 20190907
  6. ATARAX [Concomitant]
     Active Substance: HYDROXYZINE HYDROCHLORIDE
  7. COZAAR [Concomitant]
     Active Substance: LOSARTAN POTASSIUM
  8. ATEZOLIZUMAB. [Suspect]
     Active Substance: ATEZOLIZUMAB
     Indication: HEAD AND NECK CANCER
     Dosage: 1200 MG, Q3WEEKS
     Route: 042
     Dates: start: 20190809
  9. SYNTHROID [Concomitant]
     Active Substance: LEVOTHYROXINE SODIUM
  10. XL184 [Suspect]
     Active Substance: CABOZANTINIB
     Dosage: 20 MG, QD
     Route: 048
  11. ZYRTEC [Concomitant]
     Active Substance: CETIRIZINE HYDROCHLORIDE
  12. FENTANYL. [Concomitant]
     Active Substance: FENTANYL
  13. HYDROMORPHONE [Concomitant]
     Active Substance: HYDROMORPHONE

REACTIONS (3)
  - Death [Fatal]
  - Syncope [Recovering/Resolving]
  - Sinus arrhythmia [Not Recovered/Not Resolved]

NARRATIVE: CASE EVENT DATE: 20190904
